FAERS Safety Report 8464493-5 (Version None)
Quarter: 2012Q2

REPORT INFORMATION
  Report Type: 
  Country: None (occurrence: None)
  Receive Date: 20120626
  Receipt Date: 20120614
  Transmission Date: 20120825
  Serious: Yes (Death, Hospitalization)
  Sender: FDA-Public Use
  Company Number: RO-BRISTOL-MYERS SQUIBB COMPANY-16673121

PATIENT
  Age: 42 Year
  Sex: Male

DRUGS (4)
  1. YERVOY [Suspect]
     Indication: METASTATIC MALIGNANT MELANOMA
     Route: 042
     Dates: start: 20120523, end: 20120523
  2. TRAMADOL HCL [Concomitant]
  3. CIPROFLOXACIN [Concomitant]
  4. SPIRONOLACTONE [Concomitant]

REACTIONS (2)
  - METASTASES TO PLEURA [None]
  - CARDIOPULMONARY FAILURE [None]
